FAERS Safety Report 6474963-7 (Version None)
Quarter: 2009Q4

REPORT INFORMATION
  Report Type: 
  Country: None (occurrence: None)
  Receive Date: 20091204
  Receipt Date: 20090623
  Transmission Date: 20100525
  Serious: Yes (Hospitalization, Other)
  Sender: FDA-Public Use
  Company Number: MX-ELI_LILLY_AND_COMPANY-MX200903007233

PATIENT
  Age: 63 Year
  Sex: Male
  Weight: 69 kg

DRUGS (10)
  1. HUMULIN N [Suspect]
     Indication: TYPE 2 DIABETES MELLITUS
     Dosage: 20 IU, EACH MORNING
     Route: 058
     Dates: start: 20090126
  2. HUMULIN N [Suspect]
     Dosage: 16 IU, EACH EVENING
     Route: 058
     Dates: start: 20090126
  3. CAPTOPRIL [Concomitant]
     Dosage: 25 MG, DAILY (1/D)
     Route: 065
     Dates: start: 20090316
  4. FUROSEMIDE [Concomitant]
     Dosage: 20 MG, DAILY (1/D)
     Route: 065
     Dates: start: 20090316
  5. ESPIRONOLACTONA [Concomitant]
     Dosage: 25 MG, DAILY (1/D)
     Route: 065
     Dates: start: 20090316
  6. PLAVIX [Concomitant]
     Dosage: 75 MG, DAILY (1/D)
     Route: 065
     Dates: start: 20090316
  7. ASPIRINE PROTECT [Concomitant]
     Dosage: 100 MG, DAILY (1/D)
     Route: 065
     Dates: start: 20090316
  8. ROSUVASTATIN [Concomitant]
     Dosage: 10 MG, DAILY (1/D)
     Route: 065
     Dates: start: 20090316
  9. ISORBID [Concomitant]
     Dosage: 20 MG, DAILY (1/D)
     Route: 065
     Dates: start: 20090316
  10. RANITIDINE [Concomitant]
     Dosage: 150 MG, DAILY (1/D)
     Route: 065
     Dates: start: 20090316

REACTIONS (8)
  - BLOOD POTASSIUM INCREASED [None]
  - BLOOD PRESSURE DECREASED [None]
  - BRADYCARDIA [None]
  - DEHYDRATION [None]
  - DIARRHOEA [None]
  - RENAL FAILURE [None]
  - SYNCOPE [None]
  - VOMITING [None]
